FAERS Safety Report 10444030 (Version 1)
Quarter: 2014Q3

REPORT INFORMATION
  Report Type: Spontaneous
  Country: US (occurrence: US)
  Receive Date: 20140910
  Receipt Date: 20140910
  Transmission Date: 20150326
  Serious: Yes (Hospitalization)
  Sender: FDA-Public Use
  Company Number: US-SA-2014SA120200

PATIENT
  Age: 64 Year
  Sex: Male

DRUGS (1)
  1. FABRAZYME [Suspect]
     Active Substance: AGALSIDASE BETA
     Indication: FABRY^S DISEASE
     Dosage: TAKEN FROM ABOUT 10 YEARS AGO.
     Route: 041

REACTIONS (2)
  - Drug dose omission [Unknown]
  - Enterococcal infection [Unknown]
